FAERS Safety Report 18519229 (Version 3)
Quarter: 2021Q2

REPORT INFORMATION
  Report Type: Spontaneous
  Country: DE (occurrence: DE)
  Receive Date: 20201118
  Receipt Date: 20210510
  Transmission Date: 20210717
  Serious: Yes (Other)
  Sender: FDA-Public Use
  Company Number: DE-BIOGEN-2020BI00947939

PATIENT
  Age: 28 Year
  Sex: Female

DRUGS (9)
  1. GONAL?F [Concomitant]
     Active Substance: FOLLITROPIN
     Indication: INFERTILITY
     Route: 065
     Dates: start: 201707, end: 201708
  2. MENOGON [Concomitant]
     Active Substance: MENOTROPINS
     Indication: INFERTILITY
     Route: 065
     Dates: start: 201707, end: 201708
  3. UTROGEST [Concomitant]
     Active Substance: PROGESTERONE
     Indication: INFERTILITY
     Route: 065
     Dates: start: 201707, end: 201708
  4. OVITRELLE [Concomitant]
     Active Substance: CHORIOGONADOTROPIN ALFA
     Indication: INFERTILITY
     Route: 065
     Dates: start: 201707, end: 201708
  5. TYSABRI [Suspect]
     Active Substance: NATALIZUMAB
     Route: 065
     Dates: start: 20170626, end: 20170821
  6. FOLIO FORTE [Concomitant]
     Active Substance: FOLIC ACID\VITAMINS
     Indication: PLANNING TO BECOME PREGNANT
     Route: 065
     Dates: start: 20150915
  7. TYSABRI [Suspect]
     Active Substance: NATALIZUMAB
     Indication: RELAPSING-REMITTING MULTIPLE SCLEROSIS
     Route: 042
  8. SYNARELA [Concomitant]
     Active Substance: NAFARELIN ACETATE
     Indication: INFERTILITY
     Route: 065
     Dates: start: 201707, end: 201708
  9. L?THYROXIN [Concomitant]
     Active Substance: LEVOTHYROXINE SODIUM
     Indication: PLANNING TO BECOME PREGNANT
     Route: 065
     Dates: start: 20150315

REACTIONS (2)
  - Maternal exposure during pregnancy [Recovered/Resolved]
  - Abortion spontaneous [Recovered/Resolved]

NARRATIVE: CASE EVENT DATE: 20171009
